FAERS Safety Report 17521208 (Version 1)
Quarter: 2020Q1

REPORT INFORMATION
  Report Type: Spontaneous
  Country: FI (occurrence: FI)
  Receive Date: 20200310
  Receipt Date: 20200310
  Transmission Date: 20200409
  Serious: Yes (Other)
  Sender: FDA-Public Use
  Company Number: FI-MYLANLABS-2020M1024863

PATIENT
  Sex: Female

DRUGS (2)
  1. DEPRAKINE                          /00228502/ [Concomitant]
     Active Substance: VALPROATE SODIUM
     Dosage: 2000,MG,DAILY
  2. OLANZAPINE. [Suspect]
     Active Substance: OLANZAPINE
     Indication: PRODUCT USED FOR UNKNOWN INDICATION
     Dosage: UNK

REACTIONS (17)
  - Electrolyte depletion [Unknown]
  - Initial insomnia [Unknown]
  - Obesity [Unknown]
  - Constipation [Unknown]
  - Tremor [Unknown]
  - Somnolence [Unknown]
  - Fluid retention [Unknown]
  - Asthenia [Unknown]
  - Musculoskeletal stiffness [Unknown]
  - Weight increased [Unknown]
  - Fatigue [Unknown]
  - Oedema peripheral [Unknown]
  - Hypothyroidism [Unknown]
  - Urinary incontinence [Unknown]
  - Dry mouth [Unknown]
  - Increased appetite [Unknown]
  - Memory impairment [Unknown]
